FAERS Safety Report 9486371 (Version 1)
Quarter: 2013Q3

REPORT INFORMATION
  Report Type: Spontaneous
  Country: GB (occurrence: GB)
  Receive Date: 20130829
  Receipt Date: 20130829
  Transmission Date: 20140515
  Serious: Yes (Hospitalization)
  Sender: FDA-Public Use
  Company Number: GB-BAUSCH-BL-2013-004790

PATIENT
  Age: 52 Year
  Sex: Female

DRUGS (3)
  1. DEXAMETHASONE [Suspect]
     Indication: POST PROCEDURAL COMPLICATION
     Dates: start: 20130603
  2. DEXAMETHASONE [Suspect]
     Dates: start: 20130620
  3. LANSOPRAZOLE [Suspect]
     Indication: DYSPEPSIA

REACTIONS (10)
  - Large intestine perforation [Recovered/Resolved]
  - Confusional state [Unknown]
  - Cushing^s syndrome [Unknown]
  - Delirium [Unknown]
  - Gait disturbance [Unknown]
  - Dysstasia [Unknown]
  - Incoherent [Unknown]
  - Dyspepsia [Unknown]
  - Malaise [Unknown]
  - Aphagia [Unknown]
